FAERS Safety Report 17755740 (Version 1)
Quarter: 2020Q2

REPORT INFORMATION
  Report Type: Spontaneous
  Country: US (occurrence: US)
  Receive Date: 20200506
  Receipt Date: 20200506
  Transmission Date: 20200714
  Serious: No
  Sender: FDA-Public Use
  Company Number: None

PATIENT
  Age: 84 Year
  Sex: Female
  Weight: 40.5 kg

DRUGS (22)
  1. AMLODIPINE BESYLATE. [Concomitant]
     Active Substance: AMLODIPINE BESYLATE
  2. ARANESP [Concomitant]
     Active Substance: DARBEPOETIN ALFA
  3. HYDRALAZINE [Concomitant]
     Active Substance: HYDRALAZINE HYDROCHLORIDE
  4. FARYDAK [Suspect]
     Active Substance: PANOBINOSTAT
     Indication: PLASMA CELL MYELOMA
     Dosage: ?          OTHER FREQUENCY:EVERY OTHER DAY;?
     Route: 048
     Dates: start: 20200118, end: 20200506
  5. IBRANCE [Concomitant]
     Active Substance: PALBOCICLIB
  6. REVLIMID [Concomitant]
     Active Substance: LENALIDOMIDE
  7. SOLU-MEDROL [Concomitant]
     Active Substance: METHYLPREDNISOLONE SODIUM SUCCINATE
  8. REGLAN [Concomitant]
     Active Substance: METOCLOPRAMIDE HYDROCHLORIDE
  9. MEDICAL MARIJUANA [Concomitant]
     Active Substance: CANNABIS SATIVA SUBSP. INDICA TOP
  10. VITAMIN D3 [Concomitant]
     Active Substance: CHOLECALCIFEROL
  11. XPOVIO [Concomitant]
     Active Substance: SELINEXOR
  12. DEXAMETHASONE. [Concomitant]
     Active Substance: DEXAMETHASONE
  13. CRESEMBA [Concomitant]
     Active Substance: ISAVUCONAZONIUM SULFATE
  14. LEVAQUIN [Concomitant]
     Active Substance: LEVOFLOXACIN
  15. PROMACTA [Concomitant]
     Active Substance: ELTROMBOPAG OLAMINE
  16. VENCLEXTA [Concomitant]
     Active Substance: VENETOCLAX
  17. EMEND [Concomitant]
     Active Substance: APREPITANT
  18. OLANZAPINE. [Concomitant]
     Active Substance: OLANZAPINE
  19. POMALYST [Concomitant]
     Active Substance: POMALIDOMIDE
  20. PENTAMIDINE [Concomitant]
     Active Substance: PENTAMIDINE
  21. DARZALEX [Concomitant]
     Active Substance: DARATUMUMAB
  22. SODIUM CHLORIDE. [Concomitant]
     Active Substance: SODIUM CHLORIDE

REACTIONS (1)
  - Disease progression [None]

NARRATIVE: CASE EVENT DATE: 20200506
